FAERS Safety Report 4483126-6 (Version None)
Quarter: 2004Q3

REPORT INFORMATION
  Report Type: 
  Country: None (occurrence: None)
  Receive Date: 20040921
  Receipt Date: 20040610
  Transmission Date: 20050211
  Serious: Yes (Death)
  Sender: FDA-Public Use
  Company Number: 163-20785-04060199

PATIENT
  Age: 54 Year
  Sex: Male

DRUGS (1)
  1. THALOMID [Suspect]
     Indication: MULTIPLE MYELOMA
     Dosage: 150 MG QAM; 200 MG QHS, ORAL
     Route: 048
     Dates: start: 20010626, end: 20031211

REACTIONS (2)
  - DEATH [None]
  - DISEASE PROGRESSION [None]
